FAERS Safety Report 7304708 (Version 5)
Quarter: 2014Q1

REPORT INFORMATION
  Report Type: Report from Study
  Country: DE (occurrence: DE)
  Receive Date: 20100304
  Receipt Date: 20140123
  Transmission Date: 20141002
  Serious: Yes (Hospitalization, Other)
  Sender: FDA-Public Use
  Company Number: DE-TEVA-225864ISR

PATIENT
  Age: 32 Year
  Sex: Male

DRUGS (4)
  1. COPAXONE [Suspect]
     Indication: MULTIPLE SCLEROSIS
     Dosage: 20 MILLIGRAM DAILY;
     Route: 058
     Dates: start: 20070108, end: 200912
  2. COPAXONE [Suspect]
     Dosage: 20 MILLIGRAM DAILY;
     Route: 058
     Dates: start: 200912
  3. COPAXONE [Suspect]
     Dosage: 20 MILLIGRAM DAILY; IRREGULARY
     Route: 058
     Dates: start: 200912, end: 20131214
  4. COPAXONE [Suspect]
     Dosage: 20 MILLIGRAM DAILY; IRREGULARY
     Route: 058
     Dates: start: 20140105

REACTIONS (6)
  - Jaundice [Recovered/Resolved]
  - Hepatic enzyme increased [Not Recovered/Not Resolved]
  - Intentional drug misuse [Not Recovered/Not Resolved]
  - Hepatic pain [Not Recovered/Not Resolved]
  - Hepatic enzyme abnormal [Unknown]
  - Pancreatitis [Not Recovered/Not Resolved]
